FAERS Safety Report 8559178-0 (Version None)
Quarter: 2012Q3

REPORT INFORMATION
  Report Type: 
  Country: None (occurrence: None)
  Receive Date: 20120720
  Receipt Date: 20120705
  Transmission Date: 20120928
  Serious: Yes (Hospitalization)
  Sender: FDA-Public Use
  Company Number: 2012-00994

PATIENT
  Age: 83 Year
  Sex: Female

DRUGS (10)
  1. RESTAS 2 [Concomitant]
  2. ASPIRIN + DIHYDROXYALUMINUM AMINOACETATE + MAGNESIUM CARBONATE (BUFFER [Suspect]
     Indication: PRODUCT USED FOR UNKNOWN INDICATION
     Dosage: 81 MG (81 MG, ONE TABLET AFTER BREAKFAST), PER ORAL
     Route: 048
     Dates: end: 20120610
  3. GASAOL (TABLETS) [Suspect]
     Indication: PRODUCT USED FOR UNKNOWN INDICATION
     Dosage: 80 MG (40 MG, ONE TABLET AT BREAKFAST + ONE AT DINNER), PER ORAL
     Route: 048
     Dates: end: 20120610
  4. MAPROTILINE (LUDIOMIL 25) [Concomitant]
  5. PRAVASTATIN SODIUM [Suspect]
     Indication: PRODUCT USED FOR UNKNOWN INDICATION
     Dosage: 5 MG (5 MG, ONE TABLET AFTER DINNER), PER ORAL
     Route: 048
     Dates: end: 20120610
  6. ADENOSINE TRIPHOSPHATE (ADETPHOS KOWA 10%) [Concomitant]
  7. LEVOTHYROXINE (THYRADIN S25) [Concomitant]
  8. ITOPRIDE (GANATON) TABLETS) [Suspect]
     Indication: PRODUCT USED FOR UNKNOWN INDICATION
     Dosage: 180 MG (60 MG, THREE TABLETS AFTER FOOD), PER ORAL
     Route: 048
     Dates: end: 20120610
  9. BETAHISTINE (MERISLON) (TABLETS) [Concomitant]
  10. DONEPEZIL 5 [Concomitant]

REACTIONS (3)
  - LIVER DISORDER [None]
  - ALANINE AMINOTRANSFERASE INCREASED [None]
  - ASPARTATE AMINOTRANSFERASE INCREASED [None]
